FAERS Safety Report 10853368 (Version 1)
Quarter: 2015Q1

REPORT INFORMATION
  Report Type: Spontaneous
  Country: US (occurrence: None)
  Receive Date: 20150218
  Receipt Date: 20150218
  Transmission Date: 20150721
  Serious: Yes (Other)
  Sender: FDA-Public Use
  Company Number: None

PATIENT
  Age: 61 Year
  Sex: Female
  Weight: 58.97 kg

DRUGS (1)
  1. LEVOFLOXACIN 500 MG TABLETS [Suspect]
     Active Substance: LEVOFLOXACIN
     Indication: SINUSITIS
     Dosage: 1 PILL TWICE DAILY TAKEN BY MOUTH
     Route: 048
     Dates: start: 20150205, end: 20150213

REACTIONS (4)
  - Musculoskeletal pain [None]
  - Arthralgia [None]
  - Joint swelling [None]
  - Chest pain [None]

NARRATIVE: CASE EVENT DATE: 20150214
